FAERS Safety Report 25657266 (Version 1)
Quarter: 2025Q3

REPORT INFORMATION
  Report Type: Report from Study
  Country: US (occurrence: US)
  Receive Date: 20250808
  Receipt Date: 20250808
  Transmission Date: 20251020
  Serious: Yes (Hospitalization)
  Sender: TAKEDA
  Company Number: US-TAKEDA-2025TUS059938

PATIENT
  Sex: Female

DRUGS (2)
  1. MARIBAVIR [Interacting]
     Active Substance: MARIBAVIR
     Indication: Cytomegalovirus infection
     Dosage: 400 MILLIGRAM, BID
     Dates: start: 20250628, end: 20250706
  2. TACROLIMUS [Interacting]
     Active Substance: TACROLIMUS
     Indication: Product used for unknown indication

REACTIONS (8)
  - Renal disorder [Unknown]
  - Norovirus infection [Unknown]
  - Drug interaction [Unknown]
  - Cytomegalovirus infection [Unknown]
  - Gastrointestinal disorder [Unknown]
  - Dysgeusia [Unknown]
  - Fatigue [Unknown]
  - Drug level increased [Unknown]
